FAERS Safety Report 20172762 (Version 2)
Quarter: 2022Q1

REPORT INFORMATION
  Report Type: Spontaneous
  Country: US (occurrence: US)
  Receive Date: 20211211
  Receipt Date: 20220214
  Transmission Date: 20220423
  Serious: Yes (Hospitalization)
  Sender: FDA-Public Use
  Company Number: US-NOVARTISTESTPH-NVSC2021US280925

PATIENT
  Age: 5 Week
  Sex: Male

DRUGS (1)
  1. ZOLGENSMA [Suspect]
     Active Substance: ONASEMNOGENE ABEPARVOVEC-XIOI
     Indication: Product used for unknown indication
     Dosage: UNK
     Route: 042

REACTIONS (6)
  - Pyrexia [Unknown]
  - Liver function test increased [Unknown]
  - Poor quality sleep [Unknown]
  - Eating disorder [Unknown]
  - Fatigue [Unknown]
  - Somnolence [Unknown]
